FAERS Safety Report 24804198 (Version 3)
Quarter: 2025Q2

REPORT INFORMATION
  Report Type: Report from Study
  Country: DE (occurrence: DE)
  Receive Date: 20250103
  Receipt Date: 20250519
  Transmission Date: 20250716
  Serious: Yes (Life-Threatening, Hospitalization, Other)
  Sender: CSL BEHRING
  Company Number: DE-BEH-2024189655

PATIENT
  Age: 86 Year
  Sex: Female
  Weight: 51 kg

DRUGS (19)
  1. PRIVIGEN [Suspect]
     Active Substance: HUMAN IMMUNOGLOBULIN G
     Indication: Chronic lymphocytic leukaemia
     Dosage: 10 G, QMT
     Route: 042
     Dates: start: 20241128, end: 20241128
  2. PRIVIGEN [Suspect]
     Active Substance: HUMAN IMMUNOGLOBULIN G
     Route: 042
     Dates: start: 20241219
  3. PRIVIGEN [Suspect]
     Active Substance: HUMAN IMMUNOGLOBULIN G
     Route: 042
     Dates: start: 20250109
  4. PRIVIGEN [Suspect]
     Active Substance: HUMAN IMMUNOGLOBULIN G
     Route: 042
     Dates: start: 20241128, end: 20250220
  5. PRIVIGEN [Suspect]
     Active Substance: HUMAN IMMUNOGLOBULIN G
     Route: 042
     Dates: start: 20250130
  6. PRIVIGEN [Suspect]
     Active Substance: HUMAN IMMUNOGLOBULIN G
     Route: 042
     Dates: start: 20250220
  7. PRIVIGEN [Suspect]
     Active Substance: HUMAN IMMUNOGLOBULIN G
     Route: 042
     Dates: start: 20241128
  8. PRIVIGEN [Suspect]
     Active Substance: HUMAN IMMUNOGLOBULIN G
     Route: 042
     Dates: start: 20241219
  9. PRIVIGEN [Suspect]
     Active Substance: HUMAN IMMUNOGLOBULIN G
     Route: 042
     Dates: start: 20250109
  10. PRIVIGEN [Suspect]
     Active Substance: HUMAN IMMUNOGLOBULIN G
     Route: 042
     Dates: start: 20250130
  11. INFLUENZA VIRUS VACCINE [Suspect]
     Active Substance: INFLUENZA VIRUS VACCINE
     Indication: Influenza immunisation
     Route: 030
     Dates: start: 20241208
  12. ELIQUIS [Concomitant]
     Active Substance: APIXABAN
     Route: 065
  13. AMLODIPINE [Concomitant]
     Active Substance: AMLODIPINE BESYLATE
     Route: 065
  14. LATANOPROST [Concomitant]
     Active Substance: LATANOPROST
     Route: 065
  15. SYMBICORT [Concomitant]
     Active Substance: BUDESONIDE\FORMOTEROL FUMARATE DIHYDRATE
     Route: 065
  16. VITAMIN C [Concomitant]
     Active Substance: ASCORBIC ACID
     Route: 065
  17. CETIRIZINE [Concomitant]
     Active Substance: CETIRIZINE HYDROCHLORIDE
     Route: 065
  18. VENETOCLAX [Concomitant]
     Active Substance: VENETOCLAX
     Route: 065
  19. PREDNISOLONE [Concomitant]
     Active Substance: PREDNISOLONE

REACTIONS (13)
  - Bradycardia [Recovered/Resolved]
  - Syncope [Unknown]
  - Bradyarrhythmia [Recovered/Resolved]
  - Syncope [Recovered/Resolved]
  - Atrial fibrillation [Unknown]
  - Abdominal distension [Unknown]
  - Mobility decreased [Unknown]
  - Peripheral swelling [Recovered/Resolved]
  - Oral mucosal eruption [Recovered/Resolved]
  - Malaise [Unknown]
  - Arthralgia [Unknown]
  - Pain in extremity [Unknown]
  - Arthralgia [Recovered/Resolved]

NARRATIVE: CASE EVENT DATE: 20241201
